FAERS Safety Report 7154258-9 (Version None)
Quarter: 2010Q4

REPORT INFORMATION
  Report Type: 
  Country: None (occurrence: None)
  Receive Date: 20101213
  Receipt Date: 20101207
  Transmission Date: 20110411
  Serious: Yes (Hospitalization)
  Sender: FDA-Public Use
  Company Number: US-PFIZER INC-2010165234

PATIENT
  Sex: Female
  Weight: 70.6 kg

DRUGS (2)
  1. SUNITINIB MALATE [Suspect]
     Indication: GLIOBLASTOMA
     Dosage: 25 MG, EVERY EVENING
     Dates: start: 20100903, end: 20101118
  2. ZOFRAN [Concomitant]
     Indication: NAUSEA
     Dosage: 8 MG, AS NEEDED

REACTIONS (1)
  - SINUS TACHYCARDIA [None]
